FAERS Safety Report 4443842-9 (Version None)
Quarter: 2004Q3

REPORT INFORMATION
  Report Type: 
  Country: None (occurrence: None)
  Receive Date: 20040729
  Receipt Date: 20040311
  Transmission Date: 20050211
  Serious: Yes (Other)
  Sender: FDA-Public Use
  Company Number: US-JNJFOC-20040302558

PATIENT
  Age: 37 Year
  Sex: Female

DRUGS (2)
  1. RISPERDAL [Suspect]
     Dosage: 4 MG,  IN 1 DAY, ORAL;  3 MG,  IN 1 DAY, ORAL;  1 MG, 2 IN 1 DAY, ORAL
     Route: 048
  2. ZOLOFT [Concomitant]

REACTIONS (1)
  - TARDIVE DYSKINESIA [None]
